FAERS Safety Report 8580932-3 (Version None)
Quarter: 2012Q3

REPORT INFORMATION
  Report Type: 
  Country: None (occurrence: None)
  Receive Date: 20120809
  Receipt Date: 20120730
  Transmission Date: 20120928
  Serious: Yes (Death, Other)
  Sender: FDA-Public Use
  Company Number: MX-SANOFI-AVENTIS-2012SA054133

PATIENT
  Age: 81 Year
  Sex: Female

DRUGS (3)
  1. LANTUS [Suspect]
     Dosage: DOSE: 8 IU TO 12 IU
     Route: 058
     Dates: start: 20070101, end: 20120318
  2. MICARDIS [Concomitant]
     Route: 048
     Dates: end: 20120318
  3. NORVASC [Concomitant]
     Route: 048
     Dates: end: 20120318

REACTIONS (3)
  - MYOCARDIAL INFARCTION [None]
  - CHEST PAIN [None]
  - HYPERHIDROSIS [None]
